FAERS Safety Report 9360004 (Version 1)
Quarter: 2013Q2

REPORT INFORMATION
  Report Type: Spontaneous
  Country: US (occurrence: None)
  Receive Date: 20130620
  Receipt Date: 20130620
  Transmission Date: 20140414
  Serious: Yes (Death)
  Sender: FDA-Public Use
  Company Number: None

PATIENT
  Age: 79 Year
  Sex: Male
  Weight: 65.77 kg

DRUGS (2)
  1. SYMBICORT [Suspect]
     Indication: LUNG DISORDER
  2. METHADONE [Suspect]
     Indication: PAIN
     Route: 048

REACTIONS (1)
  - Death [None]
